FAERS Safety Report 4856149-2 (Version None)
Quarter: 2005Q4

REPORT INFORMATION
  Report Type: 
  Country: None (occurrence: None)
  Receive Date: 20051216
  Receipt Date: 20050729
  Transmission Date: 20060501
  Serious: Yes (Other)
  Sender: FDA-Public Use
  Company Number: US-MERCK-0508USA00345

PATIENT
  Age: 69 Year
  Sex: Male
  Weight: 109 kg

DRUGS (2)
  1. VIOXX [Suspect]
     Indication: ARTHRITIS
     Route: 048
     Dates: start: 20010116, end: 20040930
  2. VIOXX [Suspect]
     Indication: EXOSTOSIS
     Route: 048
     Dates: start: 20010116, end: 20040930

REACTIONS (8)
  - CARDIAC DISORDER [None]
  - EMBOLISM [None]
  - INGROWING NAIL [None]
  - LIMB INJURY [None]
  - LUNG DISORDER [None]
  - MYOCARDIAL INFARCTION [None]
  - ONYCHOMYCOSIS [None]
  - TENDONITIS [None]
